FAERS Safety Report 8174537-6 (Version None)
Quarter: 2012Q1

REPORT INFORMATION
  Report Type: 
  Country: None (occurrence: None)
  Receive Date: 20120229
  Receipt Date: 20120223
  Transmission Date: 20120608
  Serious: Yes (Other)
  Sender: FDA-Public Use
  Company Number: FR-PFIZER INC-2012048929

PATIENT
  Age: 56 Year
  Sex: Female

DRUGS (1)
  1. XALATAN [Suspect]
     Indication: GLAUCOMA

REACTIONS (5)
  - CHORIORETINITIS [None]
  - OROPHARYNGEAL PAIN [None]
  - RETINAL OEDEMA [None]
  - MACULAR OEDEMA [None]
  - LARYNX IRRITATION [None]
